FAERS Safety Report 12301332 (Version 1)
Quarter: 2016Q2

REPORT INFORMATION
  Report Type: Spontaneous
  Country: JP (occurrence: JP)
  Receive Date: 20160425
  Receipt Date: 20160425
  Transmission Date: 20160815
  Serious: Yes (Other)
  Sender: FDA-Public Use
  Company Number: JP-TEVA-654436ISR

PATIENT
  Age: 52 Year
  Sex: Male

DRUGS (4)
  1. BEVACIZUMAB [Suspect]
     Active Substance: BEVACIZUMAB
  2. OXALIPLATIN. [Suspect]
     Active Substance: OXALIPLATIN
  3. FOLINIC ACID [Suspect]
     Active Substance: LEUCOVORIN
  4. FLUOROURACIL. [Suspect]
     Active Substance: FLUOROURACIL

REACTIONS (1)
  - Gastrointestinal perforation [Unknown]
